FAERS Safety Report 10213669 (Version 1)
Quarter: 2014Q2

REPORT INFORMATION
  Report Type: Spontaneous
  Country: CA (occurrence: None)
  Receive Date: 20140530
  Receipt Date: 20140530
  Transmission Date: 20141212
  Serious: Yes (Hospitalization, Other)
  Sender: FDA-Public Use
  Company Number: 2014/039

PATIENT
  Age: 61 Year
  Sex: Female

DRUGS (2)
  1. VALPROIC ACID (NO PREF. NAME) 500 MG [Suspect]
  2. ZOPICLIONE (NO PREF. NAME) [Concomitant]

REACTIONS (2)
  - Acute hepatic failure [None]
  - Delirium [None]
